FAERS Safety Report 25305509 (Version 2)
Quarter: 2025Q4

REPORT INFORMATION
  Report Type: Spontaneous
  Country: US (occurrence: US)
  Receive Date: 20250513
  Receipt Date: 20251121
  Transmission Date: 20260117
  Serious: No
  Sender: TRAVERE THERAPEUTICS
  Company Number: US-TRAVERE-2025TVT00590

PATIENT
  Age: 56 Year
  Sex: Female

DRUGS (2)
  1. FILSPARI [Suspect]
     Active Substance: SPARSENTAN
     Indication: IgA nephropathy
     Route: 048
  2. FILSPARI [Suspect]
     Active Substance: SPARSENTAN
     Dosage: CUTTING THE PILLS IN HALF
     Route: 048

REACTIONS (3)
  - Nasopharyngitis [Recovering/Resolving]
  - Blood pressure decreased [Unknown]
  - Off label use [Unknown]
